FAERS Safety Report 18541344 (Version 3)
Quarter: 2021Q1

REPORT INFORMATION
  Report Type: Spontaneous
  Country: JP (occurrence: JP)
  Receive Date: 20201124
  Receipt Date: 20210324
  Transmission Date: 20210419
  Serious: Yes (Other)
  Sender: FDA-Public Use
  Company Number: JP-PFIZER INC-2020454078

PATIENT
  Sex: Male

DRUGS (2)
  1. PREDONINE [Suspect]
     Active Substance: PREDNISOLONE
     Dosage: UNK
     Route: 048
  2. GENOTROPIN GOQUICK 5.3MG [Suspect]
     Active Substance: SOMATROPIN
     Dosage: 0.2 MG, DAILY
     Route: 058
     Dates: start: 202007

REACTIONS (6)
  - Pituitary tumour benign [Unknown]
  - Device leakage [Unknown]
  - Poor quality device used [Unknown]
  - Discomfort [Unknown]
  - Incorrect dose administered [Unknown]
  - Malaise [Unknown]
